FAERS Safety Report 6498124-0 (Version None)
Quarter: 2009Q4

REPORT INFORMATION
  Report Type: 
  Country: None (occurrence: None)
  Receive Date: 20091127
  Receipt Date: 20090928
  Transmission Date: 20100525
  Serious: Yes (Hospitalization, Other)
  Sender: FDA-Public Use
  Company Number: 288195

PATIENT
  Age: 65 Year
  Sex: Female
  Weight: 70.3 kg

DRUGS (2)
  1. LEVEMIR [Suspect]
     Indication: TYPE 1 DIABETES MELLITUS
     Dosage: 30 IU, QD (IN THE AM), SUBCUTANEOUS
     Route: 058
     Dates: start: 20060101
  2. NOVOLOG [Suspect]
     Indication: TYPE 1 DIABETES MELLITUS
     Dosage: SLIDING SCALE, QD, SUBCUTANEOUS
     Route: 058
     Dates: start: 20040101

REACTIONS (5)
  - BLOOD GLUCOSE DECREASED [None]
  - BLOOD GLUCOSE INCREASED [None]
  - DEVICE MALFUNCTION [None]
  - FALL [None]
  - HYPOGLYCAEMIC UNCONSCIOUSNESS [None]
